FAERS Safety Report 4284713-0 (Version None)
Quarter: 2004Q1

REPORT INFORMATION
  Report Type: 
  Country: None (occurrence: None)
  Receive Date: 20040203
  Receipt Date: 20040120
  Transmission Date: 20041129
  Serious: Yes (Congenital Anomaly)
  Sender: FDA-Public Use
  Company Number: 000697

PATIENT
  Age: 16 Month
  Sex: Female
  Weight: 10.9 kg

DRUGS (2)
  1. METHOTREXATE [Suspect]
     Indication: ARTHRITIS
  2. ZITHROMAX [Suspect]
     Indication: STREPTOCOCCAL INFECTION

REACTIONS (11)
  - ABASIA [None]
  - COMPLICATIONS OF MATERNAL EXPOSURE TO THERAPEUTIC DRUGS [None]
  - DEVELOPMENTAL DELAY [None]
  - DYSSTASIA [None]
  - HYPERMOBILITY SYNDROME [None]
  - HYPOTONIC-HYPORESPONSIVE EPISODE [None]
  - INFANTILE COLIC [None]
  - LIGAMENT LAXITY [None]
  - MATERNAL DRUGS AFFECTING FOETUS [None]
  - TERATOGENICITY [None]
  - TRANSMISSION OF DRUG VIA SEMEN [None]
